FAERS Safety Report 10070462 (Version 1)
Quarter: 2014Q2

REPORT INFORMATION
  Report Type: Spontaneous
  Country: GB (occurrence: GB)
  Receive Date: 20140410
  Receipt Date: 20140410
  Transmission Date: 20141212
  Serious: Yes (Hospitalization)
  Sender: FDA-Public Use
  Company Number: PHFR2014GB002691

PATIENT
  Age: 25 Year
  Sex: Male
  Weight: 87.5 kg

DRUGS (2)
  1. CLOZAPINE [Suspect]
     Indication: SCHIZOPHRENIA
     Dosage: INITATION OF CLOZAPINE ESCALATION REGIME (LAST DOSE RECEIVED WAS 100 MG)
     Route: 048
     Dates: start: 20140311, end: 20140319
  2. ARIPIPRAZOLE [Concomitant]
     Dosage: 10 MG, EVERY MORNING.

REACTIONS (4)
  - Liver function test abnormal [Recovering/Resolving]
  - Alanine aminotransferase increased [Recovering/Resolving]
  - Aspartate aminotransferase increased [Recovering/Resolving]
  - Blood bilirubin increased [Recovering/Resolving]
